FAERS Safety Report 23985956 (Version 1)
Quarter: 2024Q2

REPORT INFORMATION
  Report Type: Spontaneous
  Country: US (occurrence: US)
  Receive Date: 20240618
  Receipt Date: 20240618
  Transmission Date: 20240716
  Serious: No
  Sender: FDA-Public Use
  Company Number: US-Calliditas-2024CAL01096

PATIENT
  Age: 41 Year
  Sex: Male

DRUGS (1)
  1. TARPEYO [Suspect]
     Active Substance: BUDESONIDE
     Indication: Nephritic syndrome
     Route: 048
     Dates: start: 20240418, end: 20240613

REACTIONS (2)
  - Adverse drug reaction [Unknown]
  - Off label use [Unknown]
